FAERS Safety Report 13912363 (Version 6)
Quarter: 2017Q4

REPORT INFORMATION
  Report Type: Report from Study
  Country: US (occurrence: US)
  Receive Date: 20170828
  Receipt Date: 20171013
  Transmission Date: 20180320
  Serious: Yes (Death, Life-Threatening, Hospitalization)
  Sender: FDA-Public Use
  Company Number: US-JNJFOC-20170823236

PATIENT
  Age: 58 Year
  Sex: Female
  Weight: 68.95 kg

DRUGS (5)
  1. TACLONEX [Concomitant]
     Active Substance: BETAMETHASONE DIPROPIONATE\CALCIPOTRIENE\CALCIPOTRIENE HYDRATE
     Route: 065
  2. USTEKINUMAB [Suspect]
     Active Substance: USTEKINUMAB
     Indication: PSORIASIS
     Route: 058
     Dates: start: 201009
  3. SECUKINUMAB. [Concomitant]
     Active Substance: SECUKINUMAB
     Route: 065
     Dates: start: 20151023, end: 201604
  4. OTEZLA [Concomitant]
     Active Substance: APREMILAST
     Route: 065
  5. USTEKINUMAB [Suspect]
     Active Substance: USTEKINUMAB
     Indication: PSORIASIS
     Route: 058
     Dates: start: 201604

REACTIONS (2)
  - Ureterolithiasis [Fatal]
  - Septic shock [Fatal]

NARRATIVE: CASE EVENT DATE: 20170819
